FAERS Safety Report 10150136 (Version 1)
Quarter: 2014Q2

REPORT INFORMATION
  Report Type: Spontaneous
  Country: US (occurrence: US)
  Receive Date: 20140502
  Receipt Date: 20140502
  Transmission Date: 20141212
  Serious: Yes (Death, Hospitalization)
  Sender: FDA-Public Use
  Company Number: US-GLAXOSMITHKLINE-A1070977A

PATIENT
  Age: 78 Year
  Sex: Male

DRUGS (5)
  1. ARIXTRA [Suspect]
     Indication: THROMBOSIS
     Dosage: 7.5MG PER DAY
     Route: 058
     Dates: start: 20131011, end: 20140318
  2. OXYCODONE [Concomitant]
  3. DEXAMETHAZONE [Concomitant]
  4. CHEMOTHERAPY [Concomitant]
  5. UNKNOWN MEDICATION [Concomitant]

REACTIONS (1)
  - Oesophageal carcinoma [Fatal]
